FAERS Safety Report 18920153 (Version 1)
Quarter: 2021Q1

REPORT INFORMATION
  Report Type: Other
  Country: US (occurrence: US)
  Receive Date: 20210222
  Receipt Date: 20210222
  Transmission Date: 20210420
  Serious: Yes (Hospitalization, Other)
  Sender: FDA-Public Use
  Company Number: US-ROCHE-2563964

PATIENT
  Sex: Female
  Weight: 53.12 kg

DRUGS (4)
  1. TYLENOL [Concomitant]
     Active Substance: ACETAMINOPHEN
  2. SOLU?MEDROL [Concomitant]
     Active Substance: METHYLPREDNISOLONE SODIUM SUCCINATE
  3. BENADRYL ALLERGY [Concomitant]
     Active Substance: DIPHENHYDRAMINE HYDROCHLORIDE
     Route: 042
  4. RITUXAN [Suspect]
     Active Substance: RITUXIMAB
     Indication: RELAPSING-REMITTING MULTIPLE SCLEROSIS
     Route: 042
     Dates: start: 2014

REACTIONS (13)
  - Muscle contractions involuntary [Not Recovered/Not Resolved]
  - Herpes virus infection [Not Recovered/Not Resolved]
  - JC polyomavirus test positive [Unknown]
  - Respiratory distress [Recovered/Resolved]
  - Intentional product use issue [Unknown]
  - Herpes zoster [Recovered/Resolved]
  - Febrile neutropenia [Recovered/Resolved]
  - Myelosuppression [Recovered/Resolved]
  - Urticaria [Recovered/Resolved]
  - Urinary tract infection [Recovered/Resolved]
  - Weight increased [Unknown]
  - Off label use [Unknown]
  - Infusion related reaction [Unknown]
